FAERS Safety Report 8343565-X (Version None)
Quarter: 2012Q2

REPORT INFORMATION
  Report Type: 
  Country: None (occurrence: None)
  Receive Date: 20120504
  Receipt Date: 20120423
  Transmission Date: 20120825
  Serious: Yes (Death, Hospitalization, Other)
  Sender: FDA-Public Use
  Company Number: ADR-2012-00803

PATIENT
  Age: 19 Year
  Sex: Male

DRUGS (2)
  1. BACLOFEN [Suspect]
     Indication: QUADRIPARESIS
     Route: 037
  2. BACLOFEN [Suspect]
     Indication: MYELITIS TRANSVERSE
     Route: 037

REACTIONS (17)
  - HALLUCINATION [None]
  - CLONUS [None]
  - DRUG WITHDRAWAL SYNDROME [None]
  - PYREXIA [None]
  - HAEMODIALYSIS [None]
  - CONVULSION [None]
  - RESPIRATORY DEPRESSION [None]
  - AGITATION [None]
  - GASTROINTESTINAL HAEMORRHAGE [None]
  - MUSCLE RIGIDITY [None]
  - THROMBOCYTOPENIA [None]
  - ANURIA [None]
  - HYPERTONIA [None]
  - DEPRESSED LEVEL OF CONSCIOUSNESS [None]
  - HEART RATE INCREASED [None]
  - HYPOTENSION [None]
  - RHABDOMYOLYSIS [None]
